FAERS Safety Report 9540035 (Version 1)
Quarter: 2013Q3

REPORT INFORMATION
  Report Type: Report from Study
  Country: US (occurrence: US)
  Receive Date: 20130920
  Receipt Date: 20130920
  Transmission Date: 20140515
  Serious: Yes (Hospitalization, Other)
  Sender: FDA-Public Use
  Company Number: US-US-EMD SERONO, INC.-7237720

PATIENT
  Age: 53 Year
  Sex: Female
  Weight: 70 kg

DRUGS (5)
  1. REBIF [Suspect]
     Indication: MULTIPLE SCLEROSIS
     Route: 058
     Dates: start: 20090501
  2. METFORMIN [Concomitant]
     Indication: DIABETES MELLITUS
  3. LOSARTAN [Concomitant]
     Indication: HYPERTENSION
  4. LOSARTAN [Concomitant]
     Indication: BLOOD CHOLESTEROL INCREASED
  5. CRESTOR                            /01588601/ [Concomitant]
     Indication: BLOOD CHOLESTEROL INCREASED

REACTIONS (3)
  - Benign intracranial hypertension [Not Recovered/Not Resolved]
  - Cerebral haemangioma [Not Recovered/Not Resolved]
  - Multiple sclerosis relapse [Recovered/Resolved]
